FAERS Safety Report 21483588 (Version 2)
Quarter: 2022Q4

REPORT INFORMATION
  Report Type: Spontaneous
  Country: JP (occurrence: JP)
  Receive Date: 20221020
  Receipt Date: 20221209
  Transmission Date: 20230113
  Serious: Yes (Hospitalization)
  Sender: FDA-Public Use
  Company Number: JP-ONO-2022JP024325

PATIENT
  Age: 69 Year
  Sex: Male

DRUGS (2)
  1. OPDIVO [Suspect]
     Active Substance: NIVOLUMAB
     Indication: Oesophageal carcinoma
     Dosage: 240 MG, Q2W
     Route: 041
     Dates: start: 20211224
  2. OPDIVO [Suspect]
     Active Substance: NIVOLUMAB
     Dosage: 240 MG, Q2W
     Route: 041
     Dates: start: 20220916

REACTIONS (1)
  - Hypopituitarism [Recovered/Resolved]

NARRATIVE: CASE EVENT DATE: 20220826
